FAERS Safety Report 25134335 (Version 1)
Quarter: 2025Q1

REPORT INFORMATION
  Report Type: Other
  Country: FR (occurrence: FR)
  Receive Date: 20250328
  Receipt Date: 20250328
  Transmission Date: 20250409
  Serious: Yes (Death, Other)
  Sender: BIOCON
  Company Number: FR-MIMS-BCONMC-12793

PATIENT

DRUGS (1)
  1. HULIO [Suspect]
     Active Substance: ADALIMUMAB-FKJP
     Indication: Acne
     Route: 065

REACTIONS (2)
  - Completed suicide [Fatal]
  - Product use in unapproved indication [Unknown]
